FAERS Safety Report 14676100 (Version 1)
Quarter: 2018Q1

REPORT INFORMATION
  Report Type: Spontaneous
  Country: US (occurrence: US)
  Receive Date: 20180323
  Receipt Date: 20180323
  Transmission Date: 20180509
  Serious: No
  Sender: FDA-Public Use
  Company Number: US-BAYER-2018-057176

PATIENT
  Age: 66 Year
  Sex: Male

DRUGS (1)
  1. GADAVIST [Suspect]
     Active Substance: GADOBUTROL
     Indication: NUCLEAR MAGNETIC RESONANCE IMAGING SPINAL
     Dosage: UNK UNK, ONCE
     Route: 042
     Dates: start: 20170614, end: 20170614

REACTIONS (2)
  - Sneezing [None]
  - Pruritus [None]

NARRATIVE: CASE EVENT DATE: 20170614
